FAERS Safety Report 18834273 (Version 14)
Quarter: 2022Q3

REPORT INFORMATION
  Report Type: Report from Study
  Country: GB (occurrence: GB)
  Receive Date: 20210203
  Receipt Date: 20220715
  Transmission Date: 20221026
  Serious: Yes (Death, Hospitalization)
  Sender: FDA-Public Use
  Company Number: GB-ROCHE-2559355

PATIENT
  Age: 76 Year
  Sex: Female

DRUGS (70)
  1. TRASTUZUMAB [Suspect]
     Active Substance: TRASTUZUMAB
     Indication: Breast cancer metastatic
     Dosage: 882 MILLIGRAM, Q3W ((DOSE MODIFIED))
     Route: 042
     Dates: start: 20180116, end: 20180116
  2. TRASTUZUMAB [Suspect]
     Active Substance: TRASTUZUMAB
     Dosage: 588 MILLIGRAM, Q3W, DISCONTINUED DUE TO DISEASE PROGRESSION FURTHER ANTICANCER TREATMENT)
     Route: 042
     Dates: start: 20180503, end: 20181115
  3. TRASTUZUMAB [Suspect]
     Active Substance: TRASTUZUMAB
     Dosage: 588 MILLIGRAM, Q3W
     Route: 042
     Dates: start: 20190118
  4. TRASTUZUMAB [Suspect]
     Active Substance: TRASTUZUMAB
     Dosage: 882 MILLIGRAM, Q3W(882 MG, TIW (DOSE MODIFIED) (INFUSION, SOLUTION))
     Route: 041
     Dates: start: 20180116, end: 20180116
  5. LETROZOLE [Suspect]
     Active Substance: LETROZOLE
     Indication: Breast cancer metastatic
     Dosage: 2.5 MILLIGRAM, QD
     Route: 048
     Dates: start: 20171128
  6. CAPECITABINE [Suspect]
     Active Substance: CAPECITABINE
     Indication: Breast cancer metastatic
     Dosage: 2.5 MILLIGRAM, QD
     Route: 048
     Dates: start: 20171128
  7. CAPECITABINE [Suspect]
     Active Substance: CAPECITABINE
     Dosage: 1800 MILLIGRAM, Q2W
     Route: 048
     Dates: start: 20191011, end: 20191127
  8. CAPECITABINE [Suspect]
     Active Substance: CAPECITABINE
     Dosage: 1800 MILLIGRAM, BID (DOSE MODIFIED) (0.5 DAY)
     Route: 048
     Dates: start: 20191011, end: 20191127
  9. CAPECITABINE [Suspect]
     Active Substance: CAPECITABINE
     Dosage: 2000 MILLIGRAM (0.5 DAY) (MOST RECENT DOSE PRIOR TO AE 14/FEB/2020)
     Route: 048
     Dates: start: 20191204, end: 20200214
  10. DENOSUMAB [Suspect]
     Active Substance: DENOSUMAB
     Indication: Product used for unknown indication
     Dosage: 120 MILLIGRAM (MOST RECENT DOSE PRIOR TO AE 14/FEB/2020)
     Route: 058
     Dates: start: 20180503, end: 20200214
  11. PERTUZUMAB [Suspect]
     Active Substance: PERTUZUMAB
     Indication: Breast cancer metastatic
     Dosage: 420 MILLIGRAM, Q3W, DISCONTINUED DUE TO DISEASE PROGRESSION FURTHER ANTICANCER TREATMENT
     Route: 042
     Dates: start: 20180503, end: 20181115
  12. PERTUZUMAB [Suspect]
     Active Substance: PERTUZUMAB
     Dosage: 840 MILLIGRAM, Q3W (DOSE MODIFIED, PHARMACEUTICAL DOSE FORM: 230  )
     Route: 042
     Dates: start: 20180116, end: 20180116
  13. PERTUZUMAB [Suspect]
     Active Substance: PERTUZUMAB
     Dosage: 420 MILLIGRAM, Q3W, DISCONTINUED DUE TO DISEASE PROGRESSION FURTHER ANTICANCER TREATMENT
     Route: 042
     Dates: start: 20190118, end: 20190711
  14. CAPECITABINE [Suspect]
     Active Substance: CAPECITABINE
     Indication: Breast cancer metastatic
     Dosage: 1800 MILLIGRAM, Q2W (DOSE MODIFIED)
     Route: 042
     Dates: start: 20191011, end: 20191127
  15. COCODAMOL [Concomitant]
     Active Substance: ACETAMINOPHEN\CODEINE PHOSPHATE
     Indication: Product used for unknown indication
     Dosage: 30 MILLIGRAM, PRN 30 MG (AS NECESSARY); PHARMACEUTICAL DOSE FORM: 245
     Route: 048
     Dates: end: 20200512
  16. DEXAMETHASONE [Concomitant]
     Active Substance: DEXAMETHASONE
     Indication: Metastases to central nervous system
     Dosage: 8 MILLIGRAM, BID (0.5 DAY)
     Route: 048
     Dates: start: 201812
  17. DEXAMETHASONE [Concomitant]
     Active Substance: DEXAMETHASONE
     Dosage: 4 MILLIGRAM, QID (0.25 DAY)
     Route: 048
     Dates: start: 20190417, end: 20190424
  18. DEXAMETHASONE [Concomitant]
     Active Substance: DEXAMETHASONE
     Dosage: 4 MILLIGRAM, BID
     Route: 048
     Dates: start: 20190110, end: 2019
  19. DEXAMETHASONE [Concomitant]
     Active Substance: DEXAMETHASONE
     Dosage: 6 MILLIGRAM, BID
     Route: 048
     Dates: start: 20190109
  20. DEXAMETHASONE [Concomitant]
     Active Substance: DEXAMETHASONE
     Dosage: 2 MILLIGRAM, QD
     Route: 048
     Dates: start: 20190425, end: 2019
  21. DEXAMETHASONE [Concomitant]
     Active Substance: DEXAMETHASONE
     Dosage: 8 MILLIGRAM, BID/MAY-2020
     Route: 048
  22. DEXAMETHASONE [Concomitant]
     Active Substance: DEXAMETHASONE
     Dosage: 8 MILLIGRAM(8 MG (0.5/ DAY))
     Route: 048
     Dates: start: 201812
  23. CEPHALEXIN [Concomitant]
     Active Substance: CEPHALEXIN
     Indication: Urinary tract infection
     Dosage: UNK
     Route: 048
     Dates: start: 20190208, end: 2019
  24. CEPHALEXIN [Concomitant]
     Active Substance: CEPHALEXIN
     Dosage: UNK
     Route: 065
  25. NIFEDIPINE [Concomitant]
     Active Substance: NIFEDIPINE
     Indication: Product used for unknown indication
     Dosage: 60 MILLIGRAM, QD
     Route: 048
     Dates: end: 2018
  26. NITROFURANTOIN [Concomitant]
     Active Substance: NITROFURANTOIN
     Indication: Urinary tract infection
     Dosage: 50 MILLIGRAM (0.25 DAY)
     Route: 048
     Dates: start: 20190403, end: 20190405
  27. AMOXICILLIN [Concomitant]
     Active Substance: AMOXICILLIN
     Indication: Urinary tract infection
     Dosage: 500 MILLIGRAM, TID, 500 MILLIGRAM (0.33 DAY)
     Route: 042
     Dates: start: 20190330, end: 20190401
  28. ROSUVASTATIN [Concomitant]
     Active Substance: ROSUVASTATIN
     Dosage: 5 MILLIGRAM, QD
     Route: 048
     Dates: end: 2019
  29. HYDROCORTISONE [Concomitant]
     Active Substance: HYDROCORTISONE
     Dosage: 0.5 PERCENT
     Route: 061
     Dates: start: 20191025, end: 2019
  30. SERTRALINE [Concomitant]
     Active Substance: SERTRALINE HYDROCHLORIDE
     Dosage: 50 MILLIGRAM, QD
     Route: 048
  31. LANSOPRAZOLE [Concomitant]
     Active Substance: LANSOPRAZOLE
     Indication: Metastases to central nervous system
     Dosage: 30 MILLIGRAM, QD
     Route: 048
     Dates: end: 201812
  32. LANSOPRAZOLE [Concomitant]
     Active Substance: LANSOPRAZOLE
     Dosage: 30 MILLIGRAM, QD
     Route: 048
     Dates: start: 201812
  33. METRONIDAZOLE [Concomitant]
     Active Substance: METRONIDAZOLE
     Indication: Diarrhoea
     Dosage: 400 MILLIGRAM (0.33 DAY)
     Route: 048
     Dates: start: 20190401, end: 20190403
  34. METRONIDAZOLE [Concomitant]
     Active Substance: METRONIDAZOLE
     Dosage: UNK
     Route: 065
  35. POTASSIUM CHLORIDE\SODIUM CHLORIDE [Concomitant]
     Active Substance: POTASSIUM CHLORIDE\SODIUM CHLORIDE
     Indication: Hypokalaemia
     Dosage: UNK, QD
     Route: 042
     Dates: start: 20190329, end: 20190401
  36. LEVETIRACETAM [Concomitant]
     Active Substance: LEVETIRACETAM
     Indication: Seizure
     Dosage: 250 MILLIGRAM (0.5 DAY)
     Route: 048
  37. LEVETIRACETAM [Concomitant]
     Active Substance: LEVETIRACETAM
     Dosage: 1500 MILLIGRAM, BID, 1500 MG EVERY 0.5 DAY
     Route: 048
  38. METFORMIN [Concomitant]
     Active Substance: METFORMIN HYDROCHLORIDE
     Dosage: 500 MILLIGRAM, QD
     Route: 048
     Dates: start: 2018, end: 2018
  39. FOLIC ACID [Concomitant]
     Active Substance: FOLIC ACID
     Indication: Product used for unknown indication
     Dosage: 5 MILLIGRAM, QD
     Route: 048
     Dates: start: 20160211
  40. VANCOMYCIN [Concomitant]
     Active Substance: VANCOMYCIN
     Indication: Product used for unknown indication
     Dosage: 125 MILLIGRAM (0.25 DAY)/02-MAR-2020
     Route: 065
     Dates: end: 20200316
  41. CLOTRIMAZOLE [Concomitant]
     Active Substance: CLOTRIMAZOLE
     Indication: Product used for unknown indication
     Dosage: 1 PERCENT, BID/FEB-2020
     Route: 061
  42. CLOTRIMAZOLE [Concomitant]
     Active Substance: CLOTRIMAZOLE
     Dosage: 1 PERCENT (0.5 DAY)/FEB-2020
     Route: 061
  43. MORPHINE SULFATE [Concomitant]
     Active Substance: MORPHINE SULFATE
     Indication: Product used for unknown indication
     Dosage: 2.5 MILLIGRAM
     Route: 058
     Dates: start: 20190330
  44. ASPIRIN [Concomitant]
     Active Substance: ASPIRIN
     Dosage: 75 MILLIGRAM, QD
     Route: 048
     Dates: start: 2019, end: 2019
  45. LACOSAMIDE [Concomitant]
     Active Substance: LACOSAMIDE
     Indication: Product used for unknown indication
     Dosage: 100 MILLIGRAM, BID/19-MAY-2020
     Route: 048
  46. LACOSAMIDE [Concomitant]
     Active Substance: LACOSAMIDE
     Dosage: 50 MILLIGRAM, BID/12-MAY-2020
     Route: 048
     Dates: end: 20200519
  47. LACOSAMIDE [Concomitant]
     Active Substance: LACOSAMIDE
     Dosage: 50 MILLIGRAM (0.5 DAY)/12-MAY-2020
     Route: 048
     Dates: end: 20200519
  48. NYSTATIN [Concomitant]
     Active Substance: NYSTATIN
     Indication: Product used for unknown indication
     Dosage: 1 MILLIGRAM, Q4D (EVERY 4 DAY)/05-MAY-2020
     Route: 048
     Dates: end: 20200511
  49. PROCHLORPERAZINE [Concomitant]
     Active Substance: PROCHLORPERAZINE
     Indication: Product used for unknown indication
     Dosage: 3 MILLIGRAM, BID/2020
     Route: 065
  50. PROCHLORPERAZINE [Concomitant]
     Active Substance: PROCHLORPERAZINE
     Dosage: 3 MILLIGRAM, (0.5 DAY)/2020
     Route: 065
  51. PROCHLORPERAZINE [Concomitant]
     Active Substance: PROCHLORPERAZINE
     Dosage: 6 MILLIGRAM, QD(6 MG, EVERY 1 DAY (3 MG (0.5 DAY)); PHARMACEUTICAL DOSE FORM: 245)
     Route: 065
     Dates: start: 2020
  52. CYCLIZINE [Concomitant]
     Active Substance: CYCLIZINE
     Indication: Product used for unknown indication
     Dosage: 50 MILLIGRAM, TID
     Route: 048
     Dates: start: 2019, end: 20190403
  53. GLYCOPYRROLATE [Concomitant]
     Active Substance: GLYCOPYRROLATE
     Indication: Product used for unknown indication
     Dosage: 400 MICROGRAM
     Route: 058
     Dates: start: 20190430
  54. GLYCOPYRROLATE [Concomitant]
     Active Substance: GLYCOPYRROLATE
     Dosage: 400 MICROGRAM
     Route: 058
     Dates: start: 20190330
  55. ACETAMINOPHEN [Concomitant]
     Active Substance: ACETAMINOPHEN
     Indication: Product used for unknown indication
     Dosage: 500 MILLIGRAM
     Route: 048
  56. MIDAZOLAM [Concomitant]
     Active Substance: MIDAZOLAM
     Indication: Product used for unknown indication
     Dosage: 30 MILLIGRAM/2020
     Route: 058
  57. MIDAZOLAM [Concomitant]
     Active Substance: MIDAZOLAM
     Dosage: 2.5 MILLIGRAM
     Route: 058
  58. MIDAZOLAM [Concomitant]
     Active Substance: MIDAZOLAM
     Dosage: 30 MILLIGRAM/2020
     Route: 058
  59. MIDAZOLAM [Concomitant]
     Active Substance: MIDAZOLAM
     Dosage: 10 MILLIGRAM/2020
     Route: 065
  60. ONDANSETRON [Concomitant]
     Active Substance: ONDANSETRON
     Indication: Product used for unknown indication
     Dosage: 4 MILLIGRAM (0.33 DAY)
     Route: 048
     Dates: start: 2019
  61. ENOXAPARIN [Concomitant]
     Active Substance: ENOXAPARIN
     Indication: Product used for unknown indication
     Dosage: 80 MILLIGRAM, QD/FEB-2020
     Route: 058
  62. SIMVASTATIN [Concomitant]
     Active Substance: SIMVASTATIN
     Indication: Product used for unknown indication
     Dosage: 20 MILLIGRAM, QD
     Route: 048
     Dates: start: 2019
  63. POTASSIUM CHLORIDE [Concomitant]
     Active Substance: POTASSIUM CHLORIDE
     Indication: Hypokalaemia
     Dosage: 1 OTHER, QD
     Route: 042
     Dates: start: 20190329, end: 20190401
  64. POTASSIUM CHLORIDE [Concomitant]
     Active Substance: POTASSIUM CHLORIDE
     Dosage: EVERY 1 DAY (1 OTHER)
     Route: 042
     Dates: start: 20190329, end: 20190401
  65. POTASSIUM CHLORIDE [Concomitant]
     Active Substance: POTASSIUM CHLORIDE
     Dosage: 1 OTHER, QD
     Route: 065
     Dates: start: 20190329, end: 20190401
  66. SODIUM CHLORIDE [Concomitant]
     Active Substance: SODIUM CHLORIDE
     Indication: Hypokalaemia
     Dosage: 1 OTHER
     Route: 058
     Dates: start: 20190329, end: 20190401
  67. SODIUM CHLORIDE [Concomitant]
     Active Substance: SODIUM CHLORIDE
     Dosage: UNK
     Route: 065
  68. SODIUM CHLORIDE [Concomitant]
     Active Substance: SODIUM CHLORIDE
     Dosage: UNK, QD(1 OTHER)
     Route: 042
     Dates: start: 20190329, end: 20190401
  69. SALINE [Concomitant]
     Active Substance: SODIUM CHLORIDE
     Indication: Product used for unknown indication
     Dosage: UNK
     Route: 065
  70. POTASSIUM CHLORIDE\SODIUM CHLORIDE [Concomitant]
     Active Substance: POTASSIUM CHLORIDE\SODIUM CHLORIDE
     Indication: Hypokalaemia
     Dosage: UNK, QD (1 OTHER)
     Route: 042
     Dates: start: 20190329, end: 20190401

REACTIONS (3)
  - Disease progression [Fatal]
  - Off label use [Fatal]
  - Dyspnoea [Fatal]

NARRATIVE: CASE EVENT DATE: 20200224
